FAERS Safety Report 18692510 (Version 3)
Quarter: 2021Q1

REPORT INFORMATION
  Report Type: Report from Study
  Country: None (occurrence: US)
  Receive Date: 20210103
  Receipt Date: 20210210
  Transmission Date: 20210419
  Serious: Yes (Hospitalization, Other)
  Sender: FDA-Public Use
  Company Number: US-ABBVIE-20K-163-3712733-00

PATIENT
  Sex: Male
  Weight: 124.85 kg

DRUGS (2)
  1. HUMIRA [Suspect]
     Active Substance: ADALIMUMAB
     Indication: PSORIATIC ARTHROPATHY
     Dosage: STOPPED FOR 3?5 MONTHS
     Route: 058
     Dates: start: 2002, end: 2012
  2. HUMIRA [Suspect]
     Active Substance: ADALIMUMAB
     Indication: PSORIASIS

REACTIONS (7)
  - Pulmonary thrombosis [Recovered/Resolved]
  - Ear infection [Recovered/Resolved]
  - Pneumonia [Recovered/Resolved]
  - Dyspnoea [Recovered/Resolved]
  - Lung disorder [Recovered/Resolved]
  - Atrial fibrillation [Recovered/Resolved]
  - Ear haemorrhage [Recovered/Resolved]

NARRATIVE: CASE EVENT DATE: 2012
